FAERS Safety Report 14012087 (Version 1)
Quarter: 2017Q3

REPORT INFORMATION
  Report Type: Spontaneous
  Country: US (occurrence: None)
  Receive Date: 20170926
  Receipt Date: 20170926
  Transmission Date: 20171128
  Serious: Yes (Hospitalization)
  Sender: FDA-Public Use
  Company Number: None

PATIENT
  Age: 77 Year
  Sex: Male

DRUGS (1)
  1. MITOMYCIN 40 MG ACCORD HEALTHCARE [Suspect]
     Active Substance: MITOMYCIN
     Indication: NEOPLASM MALIGNANT
     Dosage: 40MG EVERY MONTH SUB-Q
     Route: 058
     Dates: start: 20161219

REACTIONS (1)
  - Incoherent [None]

NARRATIVE: CASE EVENT DATE: 201709
